FAERS Safety Report 24397959 (Version 4)
Quarter: 2025Q1

REPORT INFORMATION
  Report Type: Spontaneous
  Country: US (occurrence: US)
  Receive Date: 20241004
  Receipt Date: 20250113
  Transmission Date: 20250408
  Serious: Yes (Other)
  Sender: PFIZER
  Company Number: US-PFIZER INC-202400268099

PATIENT
  Age: 79 Year
  Sex: Female

DRUGS (4)
  1. TUKYSA [Suspect]
     Active Substance: TUCATINIB
     Indication: Breast cancer
     Dosage: TWO 150MG TABLETS, TWICE DAILY
     Dates: start: 2019
  2. TUKYSA [Suspect]
     Active Substance: TUCATINIB
     Dosage: TWO 150 MG TABLETS, ORALLY TWICE DAILY
     Route: 048
     Dates: start: 202001
  3. TUKYSA [Suspect]
     Active Substance: TUCATINIB
     Dosage: TWO 150 MG TABLETS, TWICE DAILY
     Route: 048
     Dates: start: 202101
  4. TUKYSA [Suspect]
     Active Substance: TUCATINIB
     Dosage: 600 MG, 2X/DAY

REACTIONS (4)
  - Palmar-plantar erythrodysaesthesia syndrome [Not Recovered/Not Resolved]
  - Neuropathy peripheral [Unknown]
  - Musculoskeletal stiffness [Unknown]
  - Off label use [Unknown]

NARRATIVE: CASE EVENT DATE: 20210101
